FAERS Safety Report 9208514 (Version 1)
Quarter: 2013Q2

REPORT INFORMATION
  Report Type: Spontaneous
  Country: SE (occurrence: SE)
  Receive Date: 20130404
  Receipt Date: 20130412
  Transmission Date: 20140414
  Serious: Yes (Hospitalization)
  Sender: FDA-Public Use
  Company Number: SE-MERCK-1304SWE001681

PATIENT
  Age: 75 Year
  Sex: Female

DRUGS (3)
  1. FOSAMAX VECKOTABLETT 70 MG TABLETTER [Suspect]
     Indication: OSTEOPOROSIS
     Dosage: UNK, QW
     Route: 048
  2. VITAMIN D (UNSPECIFIED) [Concomitant]
     Indication: OSTEOPOROSIS
  3. CALCIUM (UNSPECIFIED) [Concomitant]
     Indication: OSTEOPOROSIS

REACTIONS (3)
  - Pathological fracture [Recovered/Resolved with Sequelae]
  - Femur fracture [None]
  - Hyperkeratosis [None]
